FAERS Safety Report 5695753-9 (Version None)
Quarter: 2008Q2

REPORT INFORMATION
  Report Type: 
  Country: None (occurrence: None)
  Receive Date: 20080407
  Receipt Date: 20080324
  Transmission Date: 20081010
  Serious: Yes (Other)
  Sender: FDA-Public Use
  Company Number: JP-ELI_LILLY_AND_COMPANY-JP200708002119

PATIENT
  Age: 70 Year
  Sex: Male
  Weight: 63.5 kg

DRUGS (14)
  1. PEMETREXED [Suspect]
     Indication: PLEURAL MESOTHELIOMA MALIGNANT
     Dosage: 840 MG, OTHER
     Route: 042
     Dates: start: 20070726, end: 20070906
  2. CISPLATIN [Suspect]
     Indication: PLEURAL MESOTHELIOMA MALIGNANT
     Dosage: 125 MG, OTHER
     Route: 042
     Dates: start: 20070726, end: 20070906
  3. PANVITAN [Concomitant]
     Indication: SUPPLEMENTATION THERAPY
     Dosage: 1 G, DAILY (1/D)
     Route: 048
     Dates: start: 20070717, end: 20071025
  4. CYANOCOBALAMIN [Concomitant]
     Dosage: 1 MG, OTHER
     Route: 030
     Dates: start: 20070717, end: 20070717
  5. CYANOCOBALAMIN [Concomitant]
     Dosage: 1 MG, OTHER
     Route: 030
     Dates: start: 20070918, end: 20070918
  6. CYANOCOBALAMIN [Concomitant]
     Dosage: 1 MG, OTHER
     Route: 030
     Dates: start: 20071120, end: 20071120
  7. DECADRON [Concomitant]
     Dosage: 8 MG, DAILY (1/D)
     Route: 048
     Dates: start: 20070725, end: 20070727
  8. DECADRON [Concomitant]
     Dosage: 8 MG, DAILY (1/D)
     Route: 048
     Dates: start: 20070815, end: 20070817
  9. DECADRON [Concomitant]
     Dosage: 8 MG, DAILY (1/D)
     Route: 048
     Dates: start: 20070905, end: 20070907
  10. KYTRIL [Concomitant]
     Dosage: 3 MG, OTHER
     Route: 042
     Dates: start: 20070726, end: 20070726
  11. KYTRIL [Concomitant]
     Dosage: 3 MG, OTHER
     Route: 042
     Dates: start: 20070816, end: 20070816
  12. KYTRIL [Concomitant]
     Dosage: 3 MG, OTHER
     Route: 042
     Dates: start: 20070906, end: 20070906
  13. DAONIL [Concomitant]
     Dosage: 3.75 MG, DAILY (1/D)
     Route: 048
     Dates: start: 20070705
  14. URSO 250 [Concomitant]
     Dosage: 600 MG, DAILY (1/D)
     Route: 048
     Dates: start: 20070725

REACTIONS (1)
  - GASTRIC ULCER [None]
